FAERS Safety Report 5062111-X (Version None)
Quarter: 2006Q3

REPORT INFORMATION
  Report Type: 
  Country: None (occurrence: None)
  Receive Date: 20060726
  Receipt Date: 20060721
  Transmission Date: 20061208
  Serious: Yes (Life-Threatening, Hospitalization)
  Sender: FDA-Public Use
  Company Number: DE-ROCHE-456246

PATIENT
  Age: 22 Year
  Sex: Male

DRUGS (24)
  1. BLINDED DACLIZUMAB [Suspect]
     Dosage: ROUTE: VIAL.
     Route: 042
     Dates: start: 20050818, end: 20051010
  2. MYCOPHENOLATE MOFETIL [Suspect]
     Route: 048
     Dates: start: 20050819, end: 20060719
  3. CYCLOSPORINE [Suspect]
     Dosage: TAPERED DAILY DOSE.
     Route: 048
     Dates: start: 20050819
  4. PREDNISOLONE [Suspect]
     Route: 048
     Dates: start: 20050819
  5. PREDNISOLONE [Suspect]
     Route: 048
     Dates: end: 20060719
  6. ACETYLCYSTEINE [Concomitant]
     Dates: start: 20050819
  7. VALGANCICLOVIR HCL [Concomitant]
     Dates: start: 20060107
  8. VORICONAZOL [Concomitant]
     Dates: start: 20050819, end: 20060719
  9. COTRIM [Concomitant]
     Dates: start: 20050826
  10. MAGNESIUM [Concomitant]
     Dates: start: 20050823, end: 20060719
  11. CALCIUM GLUCONATE [Concomitant]
     Dates: start: 20050823
  12. VIGANTOLETTEN [Concomitant]
     Dates: start: 20050824, end: 20060719
  13. RANITIDINE HCL [Concomitant]
     Dates: start: 20050818
  14. KREON [Concomitant]
     Dosage: DOSE REPORTED AS 6X25,000 IE.
     Dates: start: 20050823
  15. URSODESOXYCHOLIC ACID [Concomitant]
     Dosage: REPORTED AS URSODEOXYCHOLSAURE.
     Dates: start: 20050823
  16. SIMETHICON [Concomitant]
     Dates: start: 20050902
  17. EISEN(II)-GLYCIN-SULFAT-KOMPLEX [Concomitant]
     Dates: start: 20050824, end: 20060719
  18. AMPHO MORONAL [Concomitant]
     Dates: start: 20050818
  19. PHYTOMENADION [Concomitant]
     Dosage: 10 MG EVERY WEEK.
     Dates: start: 20050824
  20. ALENDRONSAEURE [Concomitant]
     Dates: start: 20050824
  21. ALBUTEROL SPIROS [Concomitant]
     Dates: start: 20050818
  22. COLISTIN [Concomitant]
     Dates: start: 20050819
  23. METOPROLOL TARTRATE [Concomitant]
     Dates: start: 20051018, end: 20060719
  24. INSULIN [Concomitant]

REACTIONS (1)
  - SEPSIS [None]
